FAERS Safety Report 4896492-4 (Version None)
Quarter: 2006Q1

REPORT INFORMATION
  Report Type: 
  Country: None (occurrence: None)
  Receive Date: 20060131
  Receipt Date: 20060125
  Transmission Date: 20060701
  Serious: Yes (Hospitalization)
  Sender: FDA-Public Use
  Company Number: US-GLAXOSMITHKLINE-A0590901A

PATIENT
  Age: 62 Year
  Sex: Male

DRUGS (9)
  1. COREG [Suspect]
     Dosage: 25MG TWICE PER DAY
     Route: 048
     Dates: start: 20010601
  2. AMIODARONE HCL [Concomitant]
  3. TORSEMIDE [Concomitant]
  4. LANOXIN [Concomitant]
  5. ALDACTONE [Concomitant]
  6. LEVOTHROID [Concomitant]
  7. ISORDIL [Concomitant]
  8. PLAVIX [Concomitant]
  9. VITAMINS [Concomitant]

REACTIONS (2)
  - BLOOD CREATININE INCREASED [None]
  - BLOOD UREA INCREASED [None]
